FAERS Safety Report 6124671-7 (Version None)
Quarter: 2009Q1

REPORT INFORMATION
  Report Type: 
  Country: None (occurrence: None)
  Receive Date: 20090319
  Receipt Date: 20081215
  Transmission Date: 20090719
  Serious: Yes (Other)
  Sender: FDA-Public Use
  Company Number: US-PFIZER INC-2008157345

PATIENT
  Sex: Female
  Weight: 68.038 kg

DRUGS (4)
  1. CHANTIX [Suspect]
     Indication: SMOKING CESSATION THERAPY
     Dates: start: 20081208
  2. ZYRTEC [Concomitant]
  3. PROVIGIL [Concomitant]
  4. ORTHO TRI-CYCLEN [Concomitant]

REACTIONS (3)
  - CHEST DISCOMFORT [None]
  - EAR CONGESTION [None]
  - PHARYNGEAL OEDEMA [None]
